FAERS Safety Report 23408720 (Version 5)
Quarter: 2025Q1

REPORT INFORMATION
  Report Type: Report from Study
  Country: US (occurrence: US)
  Receive Date: 20240117
  Receipt Date: 20250224
  Transmission Date: 20250408
  Serious: Yes (Death, Hospitalization, Other)
  Sender: INSMED
  Company Number: US-INSMED, INC.-2024-00116-US

PATIENT
  Age: 70 Year
  Sex: Male

DRUGS (6)
  1. ARIKAYCE [Suspect]
     Active Substance: AMIKACIN
     Indication: Mycobacterium avium complex infection
     Dosage: 590 MILLIGRAM, QD
     Route: 055
     Dates: end: 202404
  2. ARIKAYCE [Suspect]
     Active Substance: AMIKACIN
     Dosage: 590 MILLIGRAM, QD
     Route: 055
     Dates: start: 20240417, end: 2024
  3. ARIKAYCE [Suspect]
     Active Substance: AMIKACIN
     Route: 055
     Dates: start: 2024, end: 20250211
  4. NUZYRA [Suspect]
     Active Substance: OMADACYCLINE
     Indication: Mycobacterium avium complex infection
     Route: 065
  5. ELIQUIS [Concomitant]
     Active Substance: APIXABAN
     Indication: Cardiac disorder
     Route: 065
  6. VEST [BORIC ACID;ZINC SULFATE] [Concomitant]
     Indication: Product used for unknown indication
     Route: 065

REACTIONS (24)
  - Hospitalisation [Unknown]
  - Hospitalisation [Unknown]
  - Mycobacterium avium complex infection [Fatal]
  - Pneumonia legionella [Not Recovered/Not Resolved]
  - Spinal compression fracture [Unknown]
  - Pneumonia [Unknown]
  - Chest pain [Not Recovered/Not Resolved]
  - Contusion [Unknown]
  - Decreased activity [Not Recovered/Not Resolved]
  - Stomatitis [Unknown]
  - Haemorrhagic diathesis [Unknown]
  - Candida infection [Not Recovered/Not Resolved]
  - Sputum increased [Unknown]
  - Productive cough [Unknown]
  - Cough [Not Recovered/Not Resolved]
  - Dysgeusia [Not Recovered/Not Resolved]
  - Dysphonia [Not Recovered/Not Resolved]
  - Oropharyngeal pain [Not Recovered/Not Resolved]
  - Weight decreased [Unknown]
  - Asthenia [Unknown]
  - Haemoptysis [Not Recovered/Not Resolved]
  - Dyspnoea [Unknown]
  - Therapy interrupted [Unknown]
  - Off label use [Unknown]

NARRATIVE: CASE EVENT DATE: 20240402
